FAERS Safety Report 9129178 (Version 1)
Quarter: 2013Q1

REPORT INFORMATION
  Report Type: Spontaneous
  Country: US (occurrence: US)
  Receive Date: 20130228
  Receipt Date: 20130228
  Transmission Date: 20140127
  Serious: Yes (Other)
  Sender: FDA-Public Use
  Company Number: US-ROCHE-1080657

PATIENT
  Sex: Male
  Weight: 99.88 kg

DRUGS (3)
  1. ACCUTANE [Suspect]
     Indication: ACNE
     Route: 048
     Dates: start: 1989, end: 1995
  2. ACCUTANE [Suspect]
     Route: 065
     Dates: start: 199402, end: 199512
  3. ACCUTANE [Suspect]
     Route: 065
     Dates: start: 200309, end: 20041020

REACTIONS (5)
  - Crohn^s disease [Unknown]
  - Colitis ulcerative [Unknown]
  - Inflammatory bowel disease [Unknown]
  - Large intestine polyp [Unknown]
  - Irritable bowel syndrome [Unknown]
